FAERS Safety Report 5078486-1 (Version None)
Quarter: 2006Q3

REPORT INFORMATION
  Report Type: 
  Country: None (occurrence: None)
  Receive Date: 20060811
  Receipt Date: 20060808
  Transmission Date: 20061208
  Serious: Yes (Hospitalization)
  Sender: FDA-Public Use
  Company Number: DE-SANOFI-SYNTHELABO-F04200600160

PATIENT
  Sex: Male

DRUGS (5)
  1. MCP [Concomitant]
     Route: 065
     Dates: start: 20060410, end: 20060410
  2. ELOXATIN [Suspect]
     Indication: RECTAL CANCER
     Route: 041
     Dates: start: 20060410, end: 20060410
  3. GRANISETRON  HCL [Concomitant]
     Dosage: 1 MG
     Route: 042
     Dates: start: 20060410, end: 20060410
  4. LOPERAMID [Concomitant]
     Route: 065
     Dates: start: 20060410, end: 20060410
  5. CAPECITABINE [Suspect]
     Indication: RECTAL CANCER
     Route: 048
     Dates: start: 20060410, end: 20060410

REACTIONS (1)
  - ANGINA PECTORIS [None]
